FAERS Safety Report 17399536 (Version 1)
Quarter: 2020Q1

REPORT INFORMATION
  Report Type: Spontaneous
  Country: US (occurrence: US)
  Receive Date: 20200211
  Receipt Date: 20200211
  Transmission Date: 20200409
  Serious: No
  Sender: FDA-Public Use
  Company Number: US-DRREDDYS-USA/USA/20/0119165

PATIENT
  Sex: Female
  Weight: 77.2 kg

DRUGS (4)
  1. NICOTINE GUM [Suspect]
     Active Substance: NICOTINE
     Indication: TOBACCO USER
  2. NICOTINE. [Suspect]
     Active Substance: NICOTINE
     Indication: TOBACCO USER
     Route: 062
  3. CHANTIX [Suspect]
     Active Substance: VARENICLINE TARTRATE
     Indication: TOBACCO USER
     Route: 048
     Dates: end: 2010
  4. METFORMIN [Concomitant]
     Active Substance: METFORMIN HYDROCHLORIDE
     Indication: DIABETES MELLITUS
     Route: 048

REACTIONS (8)
  - Frustration tolerance decreased [Unknown]
  - Depressed mood [Recovered/Resolved]
  - Agitation [Unknown]
  - Abnormal dreams [Recovered/Resolved]
  - Drug ineffective [Unknown]
  - Mood altered [Recovered/Resolved]
  - Treatment noncompliance [Unknown]
  - Product quality issue [Unknown]
